FAERS Safety Report 6956819-6 (Version None)
Quarter: 2010Q3

REPORT INFORMATION
  Report Type: 
  Country: None (occurrence: None)
  Receive Date: 20100830
  Receipt Date: 20100820
  Transmission Date: 20110219
  Serious: Yes (Hospitalization)
  Sender: FDA-Public Use
  Company Number: DE-ABBOTT-10P-062-0665167-00

PATIENT
  Sex: Male
  Weight: 70 kg

DRUGS (3)
  1. HUMIRA [Suspect]
     Indication: ANKYLOSING SPONDYLITIS
     Route: 058
     Dates: start: 20091001, end: 20100201
  2. NAPROXEN [Concomitant]
     Indication: ANKYLOSING SPONDYLITIS
     Dosage: MAXIMAL DAILY DOSE 2000 MG
     Route: 048
     Dates: start: 20091001
  3. DICLOFENAC [Concomitant]
     Indication: ANKYLOSING SPONDYLITIS
     Route: 048
     Dates: start: 20100701

REACTIONS (2)
  - GASTROINTESTINAL INFECTION [None]
  - HEPATIC ENZYME INCREASED [None]
